FAERS Safety Report 10342562 (Version 2)
Quarter: 2014Q4

REPORT INFORMATION
  Report Type: Spontaneous
  Country: CA (occurrence: CA)
  Receive Date: 20140725
  Receipt Date: 20141001
  Transmission Date: 20150528
  Serious: Yes (Life-Threatening, Other)
  Sender: FDA-Public Use
  Company Number: CA-ASTRAZENECA-2014SE53524

PATIENT
  Age: 70 Year
  Sex: Female
  Weight: 56.7 kg

DRUGS (6)
  1. FOSAVANCE [Concomitant]
     Active Substance: ALENDRONATE SODIUM\CHOLECALCIFEROL
     Indication: OSTEOPOROSIS
  2. SYMBICORT [Suspect]
     Active Substance: BUDESONIDE\FORMOTEROL FUMARATE DIHYDRATE
     Indication: ASTHMA
     Dosage: 200, 2 PUFFS BID
     Route: 055
  3. CRESTOR [Suspect]
     Active Substance: ROSUVASTATIN CALCIUM
     Indication: BLOOD CHOLESTEROL INCREASED
     Route: 048
     Dates: start: 2002, end: 201201
  4. ASA [Concomitant]
     Active Substance: ASPIRIN
     Indication: ANTICOAGULANT THERAPY
  5. VITAMIN D [Concomitant]
     Active Substance: CHOLECALCIFEROL
     Indication: OSTEOPOROSIS
  6. VITAMIN B12 [Concomitant]
     Active Substance: CYANOCOBALAMIN
     Indication: VITAMIN B12 DECREASED
     Dosage: 1 CC NEEDLE EVERY 6 WEEKS

REACTIONS (7)
  - Muscle spasms [Recovered/Resolved]
  - Ankle deformity [Recovering/Resolving]
  - Anaphylactic shock [Recovering/Resolving]
  - Antinuclear antibody positive [Recovering/Resolving]
  - Limb deformity [Recovering/Resolving]
  - Myalgia [Recovering/Resolving]
  - Urticaria [Recovering/Resolving]

NARRATIVE: CASE EVENT DATE: 2008
